FAERS Safety Report 8838579 (Version 2)
Quarter: 2012Q4

REPORT INFORMATION
  Report Type: 
  Country: US (occurrence: US)
  Receive Date: 20121012
  Receipt Date: 20121022
  Transmission Date: 20130627
  Serious: No
  Sender: FDA-Public Use
  Company Number: US-VERTEX PHARMACEUTICAL INC.-2012-022368

PATIENT
  Age: 51 Year
  Sex: Male
  Weight: 77 kg

DRUGS (7)
  1. VX-950 [Suspect]
     Indication: HEPATITIS C
     Dosage: 750 mg, tid
     Route: 048
     Dates: start: 20120925, end: 20121012
  2. PEGASYS [Concomitant]
     Indication: HEPATITIS C
     Dosage: 180 ?g, UNK
     Route: 058
     Dates: start: 20120925, end: 20121012
  3. COPEGUS [Concomitant]
     Indication: HEPATITIS C
     Dosage: 400 mg  AM, 400 mg afternoon, 200 mg PM
     Dates: start: 20120925, end: 20121012
  4. NEXIUM                             /01479302/ [Concomitant]
     Dosage: 20 mg, UNK
  5. IBUPROFEN [Concomitant]
     Dosage: 200 mg, UNK
  6. MULTIVITAMIN                       /00097801/ [Concomitant]
  7. MIRALAX                            /00754501/ [Concomitant]
     Dosage: 3350 NF

REACTIONS (9)
  - Dyspnoea [Unknown]
  - Chest pain [Unknown]
  - Abdominal pain [Not Recovered/Not Resolved]
  - Pain [Not Recovered/Not Resolved]
  - Abdominal distension [Not Recovered/Not Resolved]
  - Pyrexia [Recovered/Resolved]
  - Haemorrhoidal haemorrhage [Unknown]
  - Diarrhoea [Not Recovered/Not Resolved]
  - Haemorrhoids [Unknown]
